FAERS Safety Report 6149602-5 (Version None)
Quarter: 2009Q2

REPORT INFORMATION
  Report Type: 
  Country: None (occurrence: None)
  Receive Date: 20090409
  Receipt Date: 20090329
  Transmission Date: 20091009
  Serious: Yes (Other)
  Sender: FDA-Public Use
  Company Number: US-ROCHE-624715

PATIENT
  Sex: Male

DRUGS (2)
  1. PEG-INTERFERON A-2A (RO 25-8310) [Suspect]
     Indication: DRUG USE FOR UNKNOWN INDICATION
     Dosage: FORM: PFS, MISSED DOSE ON 28 MARCH 2009
     Route: 065
     Dates: start: 20090207
  2. RIBAVIRIN [Suspect]
     Indication: DRUG USE FOR UNKNOWN INDICATION
     Dosage: FORM: PILLS, DIVIDED DOSES, MISSED DOSE ON 28 MARCH 2009
     Route: 065
     Dates: start: 20090207

REACTIONS (1)
  - APPENDICECTOMY [None]
